FAERS Safety Report 5656112-8 (Version None)
Quarter: 2008Q1

REPORT INFORMATION
  Report Type: 
  Country: None (occurrence: None)
  Receive Date: 20080305
  Receipt Date: 20080220
  Transmission Date: 20080703
  Serious: Yes (Hospitalization, Other)
  Sender: FDA-Public Use
  Company Number: S08-USA-00201-01

PATIENT
  Age: 22 Year
  Sex: Male

DRUGS (1)
  1. LEXAPRO [Suspect]
     Indication: DEPRESSION
     Dosage: 10 MG QD PO
     Route: 048
     Dates: start: 20071001

REACTIONS (3)
  - AGRANULOCYTOSIS [None]
  - SKIN INFECTION [None]
  - WHITE BLOOD CELL COUNT DECREASED [None]
